FAERS Safety Report 24152330 (Version 1)
Quarter: 2024Q3

REPORT INFORMATION
  Report Type: Spontaneous
  Country: US (occurrence: US)
  Receive Date: 20240730
  Receipt Date: 20240730
  Transmission Date: 20241017
  Serious: Yes (Hospitalization, Other)
  Sender: DR REDDYS
  Company Number: US-DRL-USA-LIT/USA/24/0010802

PATIENT
  Age: 18 Year
  Sex: Female

DRUGS (19)
  1. AMLODIPINE [Suspect]
     Active Substance: AMLODIPINE BESYLATE
     Indication: Product used for unknown indication
     Route: 048
  2. VASOPRESSIN [Suspect]
     Active Substance: VASOPRESSIN
     Indication: Overdose
  3. VASOPRESSIN [Suspect]
     Active Substance: VASOPRESSIN
     Indication: Cardiogenic shock
  4. VASOPRESSIN [Suspect]
     Active Substance: VASOPRESSIN
     Indication: Vasoplegia syndrome
  5. CALCIUM [Concomitant]
     Active Substance: CALCIUM
     Indication: Overdose
  6. CALCIUM [Concomitant]
     Active Substance: CALCIUM
     Indication: Cardiogenic shock
  7. CALCIUM [Concomitant]
     Active Substance: CALCIUM
     Indication: Vasoplegia syndrome
  8. INSULIN NOS [Concomitant]
     Active Substance: INSULIN NOS
     Indication: Overdose
  9. INSULIN NOS [Concomitant]
     Active Substance: INSULIN NOS
     Indication: Cardiogenic shock
  10. INSULIN NOS [Concomitant]
     Active Substance: INSULIN NOS
     Indication: Vasoplegia syndrome
  11. EPINEPHRINE [Concomitant]
     Active Substance: EPINEPHRINE
     Indication: Overdose
  12. EPINEPHRINE [Concomitant]
     Active Substance: EPINEPHRINE
     Indication: Cardiogenic shock
  13. EPINEPHRINE [Concomitant]
     Active Substance: EPINEPHRINE
     Indication: Vasoplegia syndrome
  14. NOREPINEPHRINE [Concomitant]
     Active Substance: NOREPINEPHRINE\NOREPINEPHRINE BITARTRATE
     Indication: Overdose
  15. NOREPINEPHRINE [Concomitant]
     Active Substance: NOREPINEPHRINE\NOREPINEPHRINE BITARTRATE
     Indication: Cardiogenic shock
  16. NOREPINEPHRINE [Concomitant]
     Active Substance: NOREPINEPHRINE\NOREPINEPHRINE BITARTRATE
     Indication: Vasoplegia syndrome
  17. METHYLENE BLUE [Concomitant]
     Active Substance: METHYLENE BLUE
     Indication: Overdose
  18. METHYLENE BLUE [Concomitant]
     Active Substance: METHYLENE BLUE
     Indication: Cardiogenic shock
  19. METHYLENE BLUE [Concomitant]
     Active Substance: METHYLENE BLUE
     Indication: Vasoplegia syndrome

REACTIONS (7)
  - Overdose [Unknown]
  - Non-cardiogenic pulmonary oedema [Unknown]
  - Vasoplegia syndrome [Unknown]
  - Cardiogenic shock [Unknown]
  - Drug ineffective for unapproved indication [Unknown]
  - Harlequin syndrome [Unknown]
  - Respiratory failure [Unknown]
